FAERS Safety Report 16704227 (Version 5)
Quarter: 2020Q1

REPORT INFORMATION
  Report Type: Spontaneous
  Country: US (occurrence: US)
  Receive Date: 20190814
  Receipt Date: 20200220
  Transmission Date: 20200409
  Serious: Yes (Hospitalization)
  Sender: FDA-Public Use
  Company Number: US-ACTELION-A-US2019-194177

PATIENT
  Age: 53 Year
  Sex: Female

DRUGS (4)
  1. UPTRAVI [Suspect]
     Active Substance: SELEXIPAG
     Dosage: 400 MCG
     Route: 048
  2. UPTRAVI [Suspect]
     Active Substance: SELEXIPAG
     Dosage: 800 MCG, BID
     Route: 048
  3. UPTRAVI [Suspect]
     Active Substance: SELEXIPAG
     Indication: PULMONARY ARTERIAL HYPERTENSION
     Dosage: 200 MCG, BID
     Route: 048
     Dates: start: 20190720
  4. OXYGEN. [Concomitant]
     Active Substance: OXYGEN

REACTIONS (9)
  - Pneumonia [Unknown]
  - Influenza [Unknown]
  - Upper respiratory tract infection [Unknown]
  - Cough [Unknown]
  - Dyspnoea [Unknown]
  - Product dose omission [Unknown]
  - Drug titration error [Unknown]
  - Tremor [Unknown]
  - Malaise [Unknown]

NARRATIVE: CASE EVENT DATE: 20190802
